FAERS Safety Report 14624257 (Version 4)
Quarter: 2020Q1

REPORT INFORMATION
  Report Type: Spontaneous
  Country: US (occurrence: US)
  Receive Date: 20180312
  Receipt Date: 20200216
  Transmission Date: 20200409
  Serious: Yes (Other)
  Sender: FDA-Public Use
  Company Number: US-BRISTOL-MYERS SQUIBB COMPANY-BMS-2018-022370

PATIENT
  Age: 78 Year
  Sex: Female

DRUGS (1)
  1. SPRYCEL [Suspect]
     Active Substance: DASATINIB
     Indication: CHRONIC MYELOID LEUKAEMIA
     Dosage: 50 MG, QD
     Route: 048
     Dates: start: 20170817

REACTIONS (7)
  - Alopecia [Unknown]
  - Cataract [Unknown]
  - Eye swelling [Unknown]
  - Arthralgia [Unknown]
  - Pruritus [Unknown]
  - Dyspnoea [Unknown]
  - Dry eye [Unknown]

NARRATIVE: CASE EVENT DATE: 20180607
